FAERS Safety Report 9227902 (Version 1)
Quarter: 2013Q2

REPORT INFORMATION
  Report Type: Report from Study
  Country: GB (occurrence: GB)
  Receive Date: 20130412
  Receipt Date: 20130412
  Transmission Date: 20140414
  Serious: Yes (Hospitalization)
  Sender: FDA-Public Use
  Company Number: GB-ROCHE-1143479

PATIENT
  Age: 71 Year
  Sex: Female
  Weight: 65 kg

DRUGS (11)
  1. BEVACIZUMAB [Suspect]
     Indication: COLON CANCER
     Route: 042
     Dates: start: 20120928, end: 20120928
  2. CAPECITABINE [Suspect]
     Indication: CHEMOTHERAPY
     Route: 048
     Dates: start: 20120928, end: 20120928
  3. OXALIPLATIN [Suspect]
     Indication: CHEMOTHERAPY
     Route: 042
     Dates: start: 20120928, end: 20120928
  4. OXALIPLATIN [Suspect]
     Route: 042
     Dates: start: 20120928, end: 20120928
  5. POTASSIUM CHLORIDE [Suspect]
     Indication: HYPOKALAEMIA
     Route: 042
     Dates: start: 20120928, end: 20120928
  6. NAPROXEN [Concomitant]
     Route: 048
  7. SALMETEROL [Concomitant]
     Indication: ASTHMA
     Route: 055
  8. LEVOTHYROXINE [Concomitant]
     Indication: THYROID OPERATION
     Route: 048
  9. LOSARTAN [Concomitant]
     Indication: HYPERTENSION
     Route: 048
  10. OMEPRAZOLE [Concomitant]
     Indication: DYSPEPSIA
     Route: 048
  11. CO-CODAMOL [Concomitant]
     Indication: PAIN
     Dosage: 30MG/500MG
     Route: 048

REACTIONS (1)
  - Laryngospasm [Recovered/Resolved]
